FAERS Safety Report 12891222 (Version 5)
Quarter: 2018Q3

REPORT INFORMATION
  Report Type: Report from Study
  Country: IT (occurrence: IT)
  Receive Date: 20161027
  Receipt Date: 20180716
  Transmission Date: 20181010
  Serious: Yes (Hospitalization)
  Sender: FDA-Public Use
  Company Number: PHHY2016IT146851

PATIENT
  Age: 71 Year
  Sex: Male

DRUGS (6)
  1. CORIPREN [Concomitant]
     Active Substance: ENALAPRIL MALEATE\LERCANIDIPINE HYDROCHLORIDE
     Indication: HYPERTENSION
     Dosage: 20 MG, QD (10MG+10MG, 1 TABLET AT 8:00 AM)
     Route: 048
  2. CARDIOASPIRIN [Concomitant]
     Active Substance: ASPIRIN
     Indication: GASTROINTESTINAL DISORDER
     Dosage: 1 DF, QD
     Route: 065
  3. FOLINA [Concomitant]
     Active Substance: FOLIC ACID
     Indication: PRODUCT USED FOR UNKNOWN INDICATION
     Dosage: 1 DF, QD
     Route: 065
  4. COSENTYX [Suspect]
     Active Substance: SECUKINUMAB
     Dosage: 300 MG, UNK
     Route: 065
  5. BENEXOL [Concomitant]
     Active Substance: CYANOCOBALAMIN\PYRIDOXINE\THIAMINE
     Indication: PRODUCT USED FOR UNKNOWN INDICATION
     Dosage: 1 DF, BID (GASTRO RESISTANT TABLET FOR ONE MONTH)
     Route: 065
  6. COSENTYX [Suspect]
     Active Substance: SECUKINUMAB
     Indication: PRODUCT USED FOR UNKNOWN INDICATION
     Dosage: 1 U, QW
     Route: 065
     Dates: start: 20161007

REACTIONS (13)
  - Cerebral infarction [Unknown]
  - Vascular encephalopathy [Unknown]
  - Hyperhomocysteinaemia [Unknown]
  - Transient ischaemic attack [Unknown]
  - Cerebral ischaemia [Unknown]
  - Sensory loss [Unknown]
  - Musculoskeletal disorder [Recovered/Resolved]
  - Hyperferritinaemia [Unknown]
  - Drug ineffective [Unknown]
  - Polycythaemia [Unknown]
  - Motor dysfunction [Unknown]
  - Dysarthria [Recovering/Resolving]
  - Carotid arteriosclerosis [Unknown]

NARRATIVE: CASE EVENT DATE: 20161013
